FAERS Safety Report 8215911-9 (Version None)
Quarter: 2012Q1

REPORT INFORMATION
  Report Type: 
  Country: None (occurrence: None)
  Receive Date: 20120316
  Receipt Date: 20120308
  Transmission Date: 20120608
  Serious: Yes (Other)
  Sender: FDA-Public Use
  Company Number: US-BAYER-2012-023926

PATIENT
  Age: 28 Year
  Sex: Female

DRUGS (2)
  1. YAZ [Suspect]
  2. IBUPROFEN [Concomitant]
     Indication: PAIN
     Dosage: 800 MG, TID AS NEEDED
     Route: 048
     Dates: start: 20080428

REACTIONS (1)
  - TRANSIENT ISCHAEMIC ATTACK [None]
